FAERS Safety Report 19089180 (Version 1)
Quarter: 2021Q2

REPORT INFORMATION
  Report Type: Spontaneous
  Country: KR (occurrence: KR)
  Receive Date: 20210403
  Receipt Date: 20210403
  Transmission Date: 20210717
  Serious: Yes (Other)
  Sender: FDA-Public Use
  Company Number: KR-ACCORD-221015

PATIENT
  Sex: Female

DRUGS (2)
  1. METHOTREXATE. [Suspect]
     Active Substance: METHOTREXATE
     Indication: CENTRAL NERVOUS SYSTEM LYMPHOMA
  2. METHOTREXATE. [Suspect]
     Active Substance: METHOTREXATE
     Indication: DIFFUSE LARGE B-CELL LYMPHOMA

REACTIONS (1)
  - Diabetes insipidus [Unknown]
